FAERS Safety Report 15927222 (Version 2)
Quarter: 2019Q1

REPORT INFORMATION
  Report Type: Spontaneous
  Country: US (occurrence: US)
  Receive Date: 20190205
  Receipt Date: 20190219
  Transmission Date: 20190417
  Serious: No
  Sender: FDA-Public Use
  Company Number: US-ALLERGAN-1849476US

PATIENT

DRUGS (3)
  1. BOTOX [Suspect]
     Active Substance: ONABOTULINUMTOXINA
     Indication: SKIN WRINKLING
     Dosage: 20 UNITS, SINGLE
     Route: 030
     Dates: start: 20180813, end: 20180813
  2. RESTYLANE [Concomitant]
     Active Substance: HYALURONIC ACID
     Dosage: UNK
     Route: 065
     Dates: start: 20181010, end: 20181010
  3. JUVEDERM VOLUMA XC [Concomitant]
     Active Substance: HYALURONIC ACID\LIDOCAINE HYDROCHLORIDE
     Dosage: UNK, SINGLE
     Route: 065
     Dates: start: 20181010, end: 20181010

REACTIONS (1)
  - Contusion [Recovered/Resolved]
